FAERS Safety Report 6510499-2 (Version None)
Quarter: 2009Q4

REPORT INFORMATION
  Report Type: 
  Country: None (occurrence: None)
  Receive Date: 20091221
  Receipt Date: 20091221
  Transmission Date: 20100525
  Serious: Yes (Other)
  Sender: FDA-Public Use
  Company Number: None

PATIENT
  Age: 46 Year
  Sex: Female
  Weight: 70 kg

DRUGS (1)
  1. ZOMETA [Suspect]

REACTIONS (4)
  - INFECTION [None]
  - MALAISE [None]
  - MUSCLE TIGHTNESS [None]
  - MUSCULAR WEAKNESS [None]
